FAERS Safety Report 17463819 (Version 1)
Quarter: 2020Q1

REPORT INFORMATION
  Report Type: Spontaneous
  Country: FR (occurrence: FR)
  Receive Date: 20200226
  Receipt Date: 20200226
  Transmission Date: 20200409
  Serious: Yes (Other)
  Sender: FDA-Public Use
  Company Number: NVSC2020FR046984

PATIENT
  Age: 72 Year
  Sex: Male

DRUGS (5)
  1. BENDAMUSTINE HYDROCHLORIDE. [Suspect]
     Active Substance: BENDAMUSTINE HYDROCHLORIDE
     Indication: B-CELL SMALL LYMPHOCYTIC LYMPHOMA
     Dosage: 280 MG, EVERY 1 CYCLE
     Route: 041
     Dates: start: 20150208, end: 20150719
  2. METHYLPREDNISOLONE. [Concomitant]
     Active Substance: METHYLPREDNISOLONE
     Indication: B-CELL SMALL LYMPHOCYTIC LYMPHOMA
     Dosage: 100 MG, UNKNOWN FREQ. (PER PROTOCOL)
     Route: 041
     Dates: start: 20150130, end: 20150130
  3. ARZERRA [Suspect]
     Active Substance: OFATUMUMAB
     Indication: B-CELL SMALL LYMPHOCYTIC LYMPHOMA
     Dosage: 300 MG TOTAL DOSE (PER PROTOCOL)
     Route: 041
     Dates: start: 20150130, end: 20150130
  4. ARZERRA [Suspect]
     Active Substance: OFATUMUMAB
     Dosage: 1000 MG, 1 TIME PER 1 CYCLIC
     Route: 041
     Dates: start: 20150207, end: 20150717
  5. METHYLPREDNISOLONE. [Concomitant]
     Active Substance: METHYLPREDNISOLONE
     Dosage: UNK, CYCLIC
     Route: 041
     Dates: start: 20150207, end: 20150718

REACTIONS (1)
  - Richter^s syndrome [Recovered/Resolved]

NARRATIVE: CASE EVENT DATE: 20160309
